FAERS Safety Report 10190509 (Version 1)
Quarter: 2014Q2

REPORT INFORMATION
  Report Type: Spontaneous
  Country: US (occurrence: US)
  Receive Date: 20140522
  Receipt Date: 20140522
  Transmission Date: 20141212
  Serious: Yes (Hospitalization)
  Sender: FDA-Public Use
  Company Number: US-SA-2014SA052239

PATIENT
  Age: 70 Year
  Sex: Female
  Weight: 40.7 kg

DRUGS (4)
  1. ELOXATIN [Suspect]
     Indication: COLON CANCER
     Route: 042
     Dates: start: 20120208
  2. CELECOXIB [Suspect]
     Indication: ADENOCARCINOMA OF COLON
     Route: 065
     Dates: start: 20120222, end: 20120226
  3. 5-FU [Suspect]
     Indication: ADENOCARCINOMA OF COLON
     Route: 040
     Dates: start: 20120208
  4. LEUCOVORIN CALCIUM [Concomitant]
     Dates: start: 20120208

REACTIONS (7)
  - Embolism [Unknown]
  - Colitis [Unknown]
  - White blood cell count decreased [Unknown]
  - Neutrophil count decreased [Unknown]
  - Anaemia [Unknown]
  - Diarrhoea [Unknown]
  - Abdominal pain [Unknown]
